FAERS Safety Report 4852096-0 (Version None)
Quarter: 2005Q4

REPORT INFORMATION
  Report Type: 
  Country: None (occurrence: None)
  Receive Date: 20051209
  Receipt Date: 20051128
  Transmission Date: 20060501
  Serious: Yes (Other)
  Sender: FDA-Public Use
  Company Number: 219863

PATIENT
  Age: 65 Year
  Sex: Female
  Weight: 70.3983 kg

DRUGS (2)
  1. AVASTIN [Suspect]
     Indication: BREAST CANCER
     Dosage: 10MG/KG Q2W INTRAVENOUS
     Route: 042
     Dates: start: 20050801
  2. TAXOL [Concomitant]

REACTIONS (2)
  - DISCOMFORT [None]
  - SKIN DISORDER [None]
